FAERS Safety Report 7073363-9 (Version None)
Quarter: 2010Q4

REPORT INFORMATION
  Report Type: 
  Country: None (occurrence: None)
  Receive Date: 20101029
  Receipt Date: 20101020
  Transmission Date: 20110411
  Serious: Yes (Other)
  Sender: FDA-Public Use
  Company Number: RS-SANOFI-AVENTIS-2010SA063969

PATIENT
  Age: 69 Year
  Sex: Female

DRUGS (7)
  1. CLEXANE [Suspect]
     Indication: PRODUCT USED FOR UNKNOWN INDICATION
     Route: 058
  2. CORDARONE [Suspect]
     Route: 042
     Dates: start: 20100913, end: 20100916
  3. CORDARONE [Suspect]
     Indication: CARDIOMYOPATHY
     Route: 042
     Dates: start: 20100913, end: 20100916
  4. BERODUAL [Concomitant]
     Indication: PRODUCT USED FOR UNKNOWN INDICATION
  5. METHYLPREDNISOLONE [Concomitant]
     Indication: PRODUCT USED FOR UNKNOWN INDICATION
  6. RANITIDINE [Concomitant]
     Indication: PRODUCT USED FOR UNKNOWN INDICATION
  7. PHENOBARBITAL [Concomitant]
     Indication: PRODUCT USED FOR UNKNOWN INDICATION

REACTIONS (3)
  - BLOOD BILIRUBIN INCREASED [None]
  - BLOOD LACTATE DEHYDROGENASE INCREASED [None]
  - TRANSAMINASES INCREASED [None]
